FAERS Safety Report 6143044-4 (Version None)
Quarter: 2009Q2

REPORT INFORMATION
  Report Type: 
  Country: None (occurrence: None)
  Receive Date: 20090401
  Receipt Date: 20090401
  Transmission Date: 20091009
  Serious: Yes (Hospitalization)
  Sender: FDA-Public Use
  Company Number: None

PATIENT
  Age: 60 Year
  Sex: Male
  Weight: 86.82 kg

DRUGS (2)
  1. SIMVASTATIN [Suspect]
     Dosage: 80 MG EVERY DAY PO
     Route: 048
     Dates: start: 20040406, end: 20081208
  2. NIACIN [Suspect]
     Dosage: 2000 MG EVERY DAY PO
     Route: 048
     Dates: start: 20080806

REACTIONS (1)
  - RHABDOMYOLYSIS [None]
